FAERS Safety Report 23615370 (Version 1)
Quarter: 2024Q1

REPORT INFORMATION
  Report Type: Spontaneous
  Country: AU (occurrence: AU)
  Receive Date: 20240311
  Receipt Date: 20240311
  Transmission Date: 20240410
  Serious: No
  Sender: FDA-Public Use
  Company Number: AU-ALKEM LABORATORIES LIMITED-AU-ALKEM-2023-14301

PATIENT
  Age: 75 Year
  Sex: Female

DRUGS (23)
  1. VANCOMYCIN [Suspect]
     Active Substance: VANCOMYCIN
     Indication: Morganella infection
     Dosage: UNK (0.1 MILLILITER (1 MILLIGRAM), INJECTION)
  2. VANCOMYCIN [Suspect]
     Active Substance: VANCOMYCIN
     Indication: Enterococcal infection
  3. VANCOMYCIN [Suspect]
     Active Substance: VANCOMYCIN
     Indication: Endophthalmitis
  4. CEFTAZIDIME [Suspect]
     Active Substance: CEFTAZIDIME
     Indication: Morganella infection
     Dosage: UNK (0.1 MILLILITER (2.25 MILLIGRAM), INJECTION)
  5. CEFTAZIDIME [Suspect]
     Active Substance: CEFTAZIDIME
     Indication: Enterococcal infection
  6. CEFTAZIDIME [Suspect]
     Active Substance: CEFTAZIDIME
     Indication: Endophthalmitis
  7. CIPROFLOXACIN [Suspect]
     Active Substance: CIPROFLOXACIN
     Indication: Morganella infection
     Dosage: 750 MILLIGRAM, BID (TWICE DAILY)
     Route: 048
  8. CIPROFLOXACIN [Suspect]
     Active Substance: CIPROFLOXACIN
     Indication: Enterococcal infection
  9. CIPROFLOXACIN [Suspect]
     Active Substance: CIPROFLOXACIN
     Indication: Endophthalmitis
  10. CHLORAMPHENICOL [Concomitant]
     Active Substance: CHLORAMPHENICOL
     Indication: Morganella infection
     Dosage: UNK (6 TIMES DAILY)
     Route: 065
  11. CHLORAMPHENICOL [Concomitant]
     Active Substance: CHLORAMPHENICOL
     Indication: Enterococcal infection
  12. CHLORAMPHENICOL [Concomitant]
     Active Substance: CHLORAMPHENICOL
     Indication: Endophthalmitis
  13. DEXAMETHASONE [Concomitant]
     Active Substance: DEXAMETHASONE
     Indication: Morganella infection
     Dosage: UNK (0.1 MILLILITER (0.4 MILLIGRAM))
     Route: 065
  14. DEXAMETHASONE [Concomitant]
     Active Substance: DEXAMETHASONE
     Indication: Enterococcal infection
  15. DEXAMETHASONE [Concomitant]
     Active Substance: DEXAMETHASONE
     Indication: Endophthalmitis
  16. HYDROCORTISONE ACETATE [Concomitant]
     Active Substance: HYDROCORTISONE ACETATE
     Indication: Morganella infection
     Dosage: UNK, HS
     Route: 061
  17. HYDROCORTISONE ACETATE [Concomitant]
     Active Substance: HYDROCORTISONE ACETATE
     Indication: Enterococcal infection
  18. HYDROCORTISONE ACETATE [Concomitant]
     Active Substance: HYDROCORTISONE ACETATE
     Indication: Endophthalmitis
  19. PREDNISOLONE ACETATE [Concomitant]
     Active Substance: PREDNISOLONE ACETATE
     Indication: Morganella infection
     Dosage: UNK (1 HOURLY), DROPS
     Route: 061
  20. PREDNISOLONE ACETATE [Concomitant]
     Active Substance: PREDNISOLONE ACETATE
     Indication: Enterococcal infection
     Dosage: UNK (2 HOURLY), DROPS
     Route: 061
  21. PREDNISOLONE ACETATE [Concomitant]
     Active Substance: PREDNISOLONE ACETATE
     Indication: Endophthalmitis
     Dosage: UNK (PREDNISOLONE SODIUM PHOSPHATE, 0.5 PERCENT)
     Route: 065
  22. PREDNISOLONE ACETATE [Concomitant]
     Active Substance: PREDNISOLONE ACETATE
     Dosage: 30 MILLIGRAM, QD (DAILY)
     Route: 048
  23. PREDNISOLONE ACETATE [Concomitant]
     Active Substance: PREDNISOLONE ACETATE
     Dosage: 5 MILLIGRAM, ONCE WEEKLY
     Route: 048

REACTIONS (1)
  - Treatment failure [Unknown]
